FAERS Safety Report 4687406-0 (Version None)
Quarter: 2005Q2

REPORT INFORMATION
  Report Type: 
  Country: None (occurrence: None)
  Receive Date: 20050609
  Receipt Date: 20050609
  Transmission Date: 20051028
  Serious: Yes (Other)
  Sender: FDA-Public Use
  Company Number: None

PATIENT
  Sex: Female
  Weight: 87.27 kg

DRUGS (1)
  1. GEMCITABINE [Suspect]
     Indication: PANCREATIC CARCINOMA
     Dosage: SEE IMAGE
     Route: 042
     Dates: start: 20050314

REACTIONS (5)
  - ANOREXIA [None]
  - CATHETER RELATED COMPLICATION [None]
  - INFECTION [None]
  - THROMBOSIS [None]
  - WHITE BLOOD CELL COUNT ABNORMAL [None]
